FAERS Safety Report 14831222 (Version 1)
Quarter: 2018Q2

REPORT INFORMATION
  Report Type: Spontaneous
  Country: FR (occurrence: FR)
  Receive Date: 20180501
  Receipt Date: 20180501
  Transmission Date: 20180711
  Serious: Yes (Other)
  Sender: FDA-Public Use
  Company Number: FR-MERCK KGAA-2046884

PATIENT
  Sex: Female

DRUGS (1)
  1. NOVOTHYROX [Suspect]
     Active Substance: LEVOTHYROXINE SODIUM
     Indication: HYPOTHYROIDISM

REACTIONS (35)
  - Tremor [None]
  - Fatigue [None]
  - Tension [None]
  - Suicidal ideation [None]
  - Heart rate decreased [None]
  - Blood pressure decreased [None]
  - Nausea [None]
  - Balance disorder [None]
  - Crying [None]
  - Arthralgia [None]
  - Anxiety [None]
  - Dizziness [None]
  - Muscle spasms [None]
  - Contusion [None]
  - Feeling cold [None]
  - Loss of personal independence in daily activities [None]
  - Amnesia [None]
  - Fear-related avoidance of activities [None]
  - Anger [None]
  - Hypersensitivity [None]
  - Insomnia [Recovered/Resolved]
  - Disturbance in attention [None]
  - Tachycardia [None]
  - Headache [Recovered/Resolved]
  - Mood swings [None]
  - Asthenia [Recovered/Resolved]
  - Bone pain [None]
  - Alopecia [None]
  - Visual impairment [None]
  - Mobility decreased [None]
  - Depression [None]
  - Irritability [None]
  - Dysphonia [None]
  - Odynophagia [None]
  - Loss of libido [None]
